FAERS Safety Report 10630535 (Version 1)
Quarter: 2014Q4

REPORT INFORMATION
  Report Type: Spontaneous
  Country: US (occurrence: US)
  Receive Date: 20141205
  Receipt Date: 20141205
  Transmission Date: 20150529
  Serious: No
  Sender: FDA-Public Use
  Company Number: US-BRISTOL-MYERS SQUIBB COMPANY-21441282

PATIENT
  Age: 71 Year
  Sex: Male
  Weight: 81.63 kg

DRUGS (12)
  1. LISINOPRIL. [Concomitant]
     Active Substance: LISINOPRIL
  2. MAGNESIUM OXIDE. [Concomitant]
     Active Substance: MAGNESIUM OXIDE
  3. OMEPRAZOLE. [Concomitant]
     Active Substance: OMEPRAZOLE
  4. VITAMIN D [Concomitant]
     Active Substance: CHOLECALCIFEROL
  5. SIMVASTATIN. [Concomitant]
     Active Substance: SIMVASTATIN
  6. ASPIRIN. [Concomitant]
     Active Substance: ASPIRIN
  7. GLIPIZIDE. [Concomitant]
     Active Substance: GLIPIZIDE
  8. MULTIVITAMIN [Concomitant]
     Active Substance: VITAMINS
  9. METOPROLOL [Concomitant]
     Active Substance: METOPROLOL
  10. POTASSIUM [Concomitant]
     Active Substance: POTASSIUM
  11. METFORMIN HCL [Concomitant]
     Active Substance: METFORMIN HYDROCHLORIDE
  12. BYETTA [Suspect]
     Active Substance: EXENATIDE

REACTIONS (1)
  - Blood glucose increased [Unknown]
